FAERS Safety Report 13984125 (Version 9)
Quarter: 2019Q3

REPORT INFORMATION
  Report Type: Spontaneous
  Country: FR (occurrence: FR)
  Receive Date: 20170918
  Receipt Date: 20190919
  Transmission Date: 20191004
  Serious: Yes (Hospitalization, Other)
  Sender: FDA-Public Use
  Company Number: FR-009507513-1709FRA007380

PATIENT
  Age: 78 Year
  Sex: Female
  Weight: 68 kg

DRUGS (15)
  1. THEOPHYLLINE [Suspect]
     Active Substance: THEOPHYLLINE ANHYDROUS
     Indication: CHRONIC OBSTRUCTIVE PULMONARY DISEASE
     Dosage: 300 MG, BID
     Route: 048
  2. SINGULAIR [Suspect]
     Active Substance: MONTELUKAST SODIUM
     Indication: ASTHMA
     Dosage: 100 MG, UNK
     Route: 048
     Dates: start: 2015
  3. SINGULAIR [Suspect]
     Active Substance: MONTELUKAST SODIUM
     Indication: ASTHMA
     Dosage: 10 MG, QD
     Route: 048
  4. TRIFLUCAN [Suspect]
     Active Substance: FLUCONAZOLE
     Indication: FUNGAL INFECTION
     Dosage: 50 DF (50 MOUTHWASHES)
     Route: 002
     Dates: start: 201708
  5. VENTOLINE (ALBUTEROL SULFATE) [Suspect]
     Active Substance: ALBUTEROL SULFATE
     Indication: ASTHMA
     Dosage: 1 DF, PRN
     Route: 055
     Dates: start: 201708
  6. TRIFLUCAN [Suspect]
     Active Substance: FLUCONAZOLE
     Indication: FUNGAL INFECTION
  7. BOTULINUM TOXIN TYPE A [Suspect]
     Active Substance: BOTULINUM TOXIN TYPE A
     Indication: ANAL INCONTINENCE
     Dosage: 500 DOSAGE FORM, SINGLE (9 INJECTIONS OF 500 UNITS)
     Route: 030
     Dates: start: 201201, end: 201201
  8. ULTIBRO BREEZEHALER [Suspect]
     Active Substance: GLYCOPYRRONIUM\INDACATEROL
     Indication: CHRONIC OBSTRUCTIVE PULMONARY DISEASE
     Dosage: 1 DOSAGE FORM, QD
     Route: 055
     Dates: start: 201708
  9. DIFFU-K [Suspect]
     Active Substance: POTASSIUM CHLORIDE
     Indication: HYPOKALAEMIA
     Dosage: 2 DF, QD
     Route: 048
     Dates: start: 201708
  10. OXALIPLATIN. [Suspect]
     Active Substance: OXALIPLATIN
     Indication: RECTAL CANCER
     Dosage: 50 MG, UNK
     Route: 042
     Dates: start: 2006, end: 2006
  11. BURINEX [Suspect]
     Active Substance: BUMETANIDE
     Indication: HYPERTENSION
     Dosage: 5 MILLIGRAM, QD
     Route: 048
     Dates: start: 201708
  12. PULMICORT TURBUHALER [Suspect]
     Active Substance: BUDESONIDE
     Indication: CHRONIC OBSTRUCTIVE PULMONARY DISEASE
     Dosage: 200 MICROGRAM, BID (400 MICROGRAM, QD )
     Route: 055
     Dates: start: 2015
  13. XELODA [Suspect]
     Active Substance: CAPECITABINE
     Indication: RECTAL CANCER
     Dosage: 825 MILLIGRAM/SQ. METER
     Route: 048
     Dates: start: 2006, end: 2006
  14. CORTANCYL [Suspect]
     Active Substance: PREDNISONE
     Indication: CHRONIC OBSTRUCTIVE PULMONARY DISEASE
     Dosage: 12 MG, QD
     Route: 048
     Dates: start: 201708
  15. BOTULINUM TOXIN TYPE A [Suspect]
     Active Substance: BOTULINUM TOXIN TYPE A
     Dosage: 500 DOSAGE FORM, ONCE
     Route: 030

REACTIONS (5)
  - Congestive cardiomyopathy [Not Recovered/Not Resolved]
  - Left ventricular failure [Not Recovered/Not Resolved]
  - Arteriosclerosis coronary artery [Not Recovered/Not Resolved]
  - Overdose [Unknown]
  - Off label use [Unknown]

NARRATIVE: CASE EVENT DATE: 201708
